FAERS Safety Report 5538188-1 (Version None)
Quarter: 2007Q4

REPORT INFORMATION
  Report Type: 
  Country: None (occurrence: None)
  Receive Date: 20071207
  Receipt Date: 20071127
  Transmission Date: 20080405
  Serious: Yes (Hospitalization, Disabling)
  Sender: FDA-Public Use
  Company Number: CH-ABBOTT-07P-151-0426110-00

PATIENT
  Age: 78 Year
  Sex: Female

DRUGS (16)
  1. DEPAKENE [Suspect]
     Indication: EPILEPSY
     Route: 048
     Dates: start: 20070101, end: 20070622
  2. DEPAKENE [Suspect]
     Indication: EPILEPSY
     Route: 048
     Dates: start: 20070623, end: 20070629
  3. ACETYLSALICYLIC ACID SRT [Suspect]
     Indication: MYOCARDIAL ISCHAEMIA
     Route: 048
     Dates: start: 20070615, end: 20070713
  4. ACETYLSALICYLIC ACID SRT [Suspect]
     Indication: ATRIAL FIBRILLATION
  5. ESOMEPRAZOLE MAGNESIUM [Suspect]
     Indication: DRUG USE FOR UNKNOWN INDICATION
     Route: 048
     Dates: start: 20070615, end: 20070629
  6. FLUCONAZOLE [Suspect]
     Indication: ORAL FUNGAL INFECTION
     Route: 048
     Dates: start: 20070615, end: 20070619
  7. ALENDRONATE SODIUM [Suspect]
     Indication: DRUG USE FOR UNKNOWN INDICATION
     Route: 048
     Dates: start: 20070316, end: 20070629
  8. LEVETIRACETAM [Concomitant]
     Indication: EPILEPSY
     Route: 048
     Dates: start: 20070101
  9. ENOXAPARIN SODIUM [Concomitant]
     Indication: ATRIAL FIBRILLATION
     Route: 058
     Dates: start: 20070615, end: 20070701
  10. ENOXAPARIN SODIUM [Concomitant]
     Indication: MYOCARDIAL ISCHAEMIA
  11. ACENOCOUMAROL [Concomitant]
     Indication: ATRIAL FIBRILLATION
     Route: 048
     Dates: start: 20070101
  12. ACENOCOUMAROL [Concomitant]
     Indication: MYOCARDIAL ISCHAEMIA
  13. BELOC [Concomitant]
     Indication: DRUG USE FOR UNKNOWN INDICATION
     Route: 048
     Dates: start: 20070101
  14. CYANOCOBALAMIN [Concomitant]
     Indication: DRUG USE FOR UNKNOWN INDICATION
     Route: 058
     Dates: start: 20070211
  15. QUETIAPINE FUMARATE [Concomitant]
     Indication: DRUG USE FOR UNKNOWN INDICATION
     Route: 048
     Dates: start: 20070615
  16. RHAMNUS FRANGULA EXTRACT [Concomitant]
     Indication: DRUG USE FOR UNKNOWN INDICATION
     Route: 048
     Dates: start: 20070101

REACTIONS (13)
  - APHASIA [None]
  - CARDIAC VENTRICULAR DISORDER [None]
  - CONFUSIONAL STATE [None]
  - DRUG LEVEL BELOW THERAPEUTIC [None]
  - EATING DISORDER [None]
  - ERYTHEMA MULTIFORME [None]
  - HAEMORRHAGE [None]
  - HYPOALBUMINAEMIA [None]
  - MALNUTRITION [None]
  - MYOCARDIAL ISCHAEMIA [None]
  - ORAL FUNGAL INFECTION [None]
  - ORAL MUCOSAL EXFOLIATION [None]
  - POOR PERSONAL HYGIENE [None]
